FAERS Safety Report 5254478-4 (Version None)
Quarter: 2007Q1

REPORT INFORMATION
  Report Type: 
  Country: None (occurrence: None)
  Receive Date: 20070302
  Receipt Date: 20070219
  Transmission Date: 20070707
  Serious: Yes (Other)
  Sender: FDA-Public Use
  Company Number: FR-PFIZER INC-2006109109

PATIENT
  Sex: Male
  Weight: 65 kg

DRUGS (7)
  1. NEURONTIN [Suspect]
     Indication: NEURALGIA
     Dosage: DAILY DOSE:3000MG
     Route: 048
     Dates: start: 20011004, end: 20020716
  2. NEURONTIN [Suspect]
  3. TEGRETOL [Suspect]
  4. LAMICTAL [Suspect]
  5. LAROXYL [Suspect]
  6. RIVOTRIL [Suspect]
  7. DOLIPRANE [Suspect]
     Indication: NEURALGIA
     Dosage: DAILY DOSE:3GRAM
     Route: 048
     Dates: start: 20010706, end: 20020616

REACTIONS (8)
  - ALANINE AMINOTRANSFERASE INCREASED [None]
  - ASPARTATE AMINOTRANSFERASE INCREASED [None]
  - BLOOD ALKALINE PHOSPHATASE INCREASED [None]
  - CYTOLYTIC HEPATITIS [None]
  - DRUG ADMINISTRATION ERROR [None]
  - GAMMA-GLUTAMYLTRANSFERASE INCREASED [None]
  - HEPATIC FUNCTION ABNORMAL [None]
  - INTENTIONAL OVERDOSE [None]
